FAERS Safety Report 11603104 (Version 1)
Quarter: 2015Q4

REPORT INFORMATION
  Report Type: Spontaneous
  Country: US (occurrence: None)
  Receive Date: 20151005
  Receipt Date: 20151005
  Transmission Date: 20160304
  Serious: Yes (Life-Threatening, Disabling, Other)
  Sender: FDA-Public Use
  Company Number: None

PATIENT
  Age: 62 Year
  Sex: Female
  Weight: 94.35 kg

DRUGS (1)
  1. VICTOZA [Suspect]
     Active Substance: LIRAGLUTIDE
     Indication: DIABETES MELLITUS MANAGEMENT
     Dosage: GIVEN INTO/UNDER SKIN
     Route: 042
     Dates: start: 20150310, end: 20150604

REACTIONS (6)
  - Heart rate increased [None]
  - Nausea [None]
  - Weight decreased [None]
  - Blood glucose increased [None]
  - Palpitations [None]
  - Arrhythmia [None]

NARRATIVE: CASE EVENT DATE: 20150504
